FAERS Safety Report 18947215 (Version 7)
Quarter: 2022Q2

REPORT INFORMATION
  Report Type: Spontaneous
  Country: NL (occurrence: NL)
  Receive Date: 20210226
  Receipt Date: 20220513
  Transmission Date: 20220721
  Serious: Yes (Hospitalization, Other)
  Sender: FDA-Public Use
  Company Number: NVSC2020NL257509

PATIENT
  Age: 30 Year
  Sex: Female
  Weight: 66 kg

DRUGS (15)
  1. TACROLIMUS [Suspect]
     Active Substance: TACROLIMUS
     Indication: Renal transplant
     Dosage: 5 MG, QD
     Route: 048
     Dates: start: 20170704
  2. TACROLIMUS [Suspect]
     Active Substance: TACROLIMUS
     Dosage: 5 MG, QD
     Route: 048
     Dates: start: 20191101
  3. AZATHIOPRINE [Concomitant]
     Active Substance: AZATHIOPRINE
     Indication: Immunosuppression
     Dosage: 100 MG, QD
     Route: 048
     Dates: start: 20180123
  4. AZATHIOPRINE [Concomitant]
     Active Substance: AZATHIOPRINE
     Indication: Renal transplant
  5. HYDROXYCHLOROQUINE [Concomitant]
     Active Substance: HYDROXYCHLOROQUINE
     Indication: Systemic lupus erythematosus
     Dosage: 200 MG, Q12H
     Route: 048
  6. HYDROXYCHLOROQUINE [Concomitant]
     Active Substance: HYDROXYCHLOROQUINE
     Dosage: 200 MG,( 0.5 DAY)
     Route: 048
     Dates: start: 2004
  7. OMEPRAZOLE [Concomitant]
     Active Substance: OMEPRAZOLE
     Indication: Thrombosis
     Dosage: 20 MG, QD
     Route: 048
  8. OMEPRAZOLE [Concomitant]
     Active Substance: OMEPRAZOLE
     Indication: Prophylaxis
     Dosage: 0.5 DOSAGE FORM (20 MG)
     Route: 048
     Dates: start: 2014
  9. PREDNISOLONE [Concomitant]
     Active Substance: PREDNISOLONE
     Indication: Immunosuppression
     Dosage: 5 MG, QD
     Route: 048
     Dates: start: 2014
  10. PREDNISOLONE [Concomitant]
     Active Substance: PREDNISOLONE
     Indication: Renal transplant
     Dosage: 5 MG, QD
     Route: 048
     Dates: start: 20170118
  11. PREDNISOLONE [Concomitant]
     Active Substance: PREDNISOLONE
     Indication: Systemic lupus erythematosus
  12. LABETALOL [Concomitant]
     Active Substance: LABETALOL\LABETALOL HYDROCHLORIDE
     Indication: Hypertension
     Dosage: 100 MG, QD
     Route: 048
  13. LABETALOL [Concomitant]
     Active Substance: LABETALOL\LABETALOL HYDROCHLORIDE
     Dosage: 100 MG, QD
     Route: 048
     Dates: start: 20181113
  14. ASPIRIN [Concomitant]
     Active Substance: ASPIRIN
     Indication: Product used for unknown indication
     Dosage: 80 MG, QD
     Route: 048
     Dates: start: 20191031
  15. ASPIRIN [Concomitant]
     Active Substance: ASPIRIN
     Dosage: 80 MG, QD
     Route: 048
     Dates: start: 20191107, end: 20200116

REACTIONS (2)
  - Stillbirth [Recovered/Resolved]
  - Maternal exposure during pregnancy [Unknown]

NARRATIVE: CASE EVENT DATE: 20190712
